FAERS Safety Report 7501106-0 (Version None)
Quarter: 2011Q2

REPORT INFORMATION
  Report Type: 
  Country: None (occurrence: None)
  Receive Date: 20110524
  Receipt Date: 20100725
  Transmission Date: 20111010
  Serious: No
  Sender: FDA-Public Use
  Company Number: US-NOVEN-ALL1-2010-03994

PATIENT

DRUGS (2)
  1. DAYTRANA [Suspect]
     Dosage: 15 MG, 1X/DAY:QD
     Route: 062
     Dates: start: 20090101
  2. CLONIDINE [Concomitant]
     Dosage: .05 MG, 1X/DAY:QD (1/2 OF A 0.1 MG. TABLET)
     Route: 048
     Dates: start: 20100101

REACTIONS (4)
  - APPLICATION SITE DRYNESS [None]
  - DRUG INEFFECTIVE [None]
  - APPLICATION SITE ERYTHEMA [None]
  - APPLICATION SITE DISCOLOURATION [None]
